FAERS Safety Report 5983244-7 (Version None)
Quarter: 2008Q4

REPORT INFORMATION
  Report Type: 
  Country: None (occurrence: None)
  Receive Date: 20081208
  Receipt Date: 20080517
  Transmission Date: 20090506
  Serious: No
  Sender: FDA-Public Use
  Company Number: US-BAYER-200812257BCC

PATIENT
  Age: 62 Year
  Sex: Male
  Weight: 129 kg

DRUGS (2)
  1. ALEVE-D SINUS + COLD [Suspect]
     Indication: NASOPHARYNGITIS
     Route: 048
     Dates: start: 20080516, end: 20080520
  2. FLOMAX [Concomitant]

REACTIONS (1)
  - NASOPHARYNGITIS [None]
